FAERS Safety Report 5377201-1 (Version None)
Quarter: 2007Q3

REPORT INFORMATION
  Report Type: 
  Country: None (occurrence: None)
  Receive Date: 20070703
  Receipt Date: 20070625
  Transmission Date: 20080115
  Serious: Yes (Life-Threatening)
  Sender: FDA-Public Use
  Company Number: JP-GENENTECH-243486

PATIENT
  Sex: Female
  Weight: 45 kg

DRUGS (12)
  1. RITUXAN [Suspect]
     Indication: RENAL TRANSPLANT
     Dosage: 67 MG, QD X 3 DOSES
     Route: 042
     Dates: start: 20070315
  2. TACROLIMUS [Concomitant]
     Indication: RENAL TRANSPLANT
     Dates: start: 20070314, end: 20070407
  3. MYCOPHENOLATE MOFETIL [Concomitant]
     Indication: RENAL TRANSPLANT
     Dates: start: 20070314, end: 20070407
  4. METHYLPREDNISOLONE [Concomitant]
     Indication: RENAL TRANSPLANT
     Dates: start: 20070314, end: 20070407
  5. GASTER [Concomitant]
     Indication: DRUG USE FOR UNKNOWN INDICATION
     Route: 048
     Dates: start: 20070314, end: 20070407
  6. IBUPROFEN [Concomitant]
     Indication: DRUG USE FOR UNKNOWN INDICATION
     Dosage: 200 MG, UNK
     Route: 048
     Dates: start: 20070315
  7. POLARAMINE [Concomitant]
     Indication: DRUG USE FOR UNKNOWN INDICATION
     Dosage: 200 MG, UNK
     Route: 048
     Dates: start: 20070315
  8. DOXAZOSIN MESYLATE [Concomitant]
     Indication: DIABETES MELLITUS
     Dosage: 2 MG, UNK
     Route: 048
     Dates: start: 20070321, end: 20070327
  9. OLMETEC [Concomitant]
     Indication: DIABETES MELLITUS
     Dosage: 40 MG, UNK
     Route: 048
     Dates: start: 20070322, end: 20070327
  10. PRECIPITATED CALCIUM CARBONATE [Concomitant]
     Indication: DIABETES MELLITUS
     Dosage: 3 MG, UNK
     Route: 048
     Dates: start: 20070322, end: 20070327
  11. NORVASC [Concomitant]
     Indication: DIABETES MELLITUS
     Dosage: 5 MG, UNK
     Route: 048
     Dates: start: 20070322, end: 20070327
  12. ALFAROL [Concomitant]
     Indication: DIABETES MELLITUS
     Dosage: 0.25 A?G, UNK
     Route: 048
     Dates: start: 20070322, end: 20070327

REACTIONS (3)
  - BLOOD POTASSIUM INCREASED [None]
  - CARDIAC ARREST [None]
  - WHITE BLOOD CELL COUNT DECREASED [None]
